FAERS Safety Report 11088994 (Version 1)
Quarter: 2015Q2

REPORT INFORMATION
  Report Type: Report from Study
  Country: IN (occurrence: IN)
  Receive Date: 20150504
  Receipt Date: 20150504
  Transmission Date: 20150821
  Serious: Yes (Other)
  Sender: FDA-Public Use
  Company Number: PHHY2015IN051935

PATIENT
  Age: 40 Year
  Sex: Male

DRUGS (1)
  1. VOVERAN [Suspect]
     Active Substance: DICLOFENAC SODIUM
     Indication: PRODUCT USED FOR UNKNOWN INDICATION
     Dosage: UNK
     Route: 065

REACTIONS (3)
  - Pyrexia [Unknown]
  - Arthralgia [Unknown]
  - Typhoid fever [Unknown]
